FAERS Safety Report 18793961 (Version 1)
Quarter: 2021Q1

REPORT INFORMATION
  Report Type: Spontaneous
  Country: US (occurrence: US)
  Receive Date: 20210127
  Receipt Date: 20210127
  Transmission Date: 20210419
  Serious: No
  Sender: FDA-Public Use
  Company Number: US-GLAXOSMITHKLINE-USCH2021000526

PATIENT
  Age: 65 Year
  Sex: Female

DRUGS (1)
  1. ADVIL [Suspect]
     Active Substance: IBUPROFEN
     Indication: PAIN
     Dosage: TOOK 2 ADVIL
     Dates: start: 20201225

REACTIONS (3)
  - Hypersensitivity [Unknown]
  - Peripheral swelling [Recovered/Resolved]
  - Toothache [Recovering/Resolving]

NARRATIVE: CASE EVENT DATE: 20201225
